FAERS Safety Report 5199567-8 (Version None)
Quarter: 2007Q1

REPORT INFORMATION
  Report Type: 
  Country: None (occurrence: None)
  Receive Date: 20070103
  Receipt Date: 20070103
  Transmission Date: 20070707
  Serious: No
  Sender: FDA-Public Use
  Company Number: None

PATIENT
  Age: 40 Year
  Sex: Female
  Weight: 58.0604 kg

DRUGS (2)
  1. BOTOX [Suspect]
     Indication: MUSCLE DISORDER
     Dosage: 35-38 UNITS 1 IM
     Route: 030
     Dates: start: 20060714, end: 20060714
  2. BOTOX [Suspect]
     Indication: MYOFASCIAL PAIN SYNDROME
     Dosage: 35-38 UNITS 1 IM
     Route: 030
     Dates: start: 20060714, end: 20060714

REACTIONS (10)
  - DEFORMITY [None]
  - INJECTION SITE PAIN [None]
  - INJECTION SITE REACTION [None]
  - MASTICATION DISORDER [None]
  - MUSCLE ATROPHY [None]
  - MUSCLE DISORDER [None]
  - MYALGIA [None]
  - PAIN [None]
  - PARALYSIS [None]
  - SPEECH DISORDER [None]
